FAERS Safety Report 6649577-6 (Version None)
Quarter: 2010Q1

REPORT INFORMATION
  Report Type: 
  Country: None (occurrence: None)
  Receive Date: 20100324
  Receipt Date: 20100322
  Transmission Date: 20100710
  Serious: Yes (Hospitalization)
  Sender: FDA-Public Use
  Company Number: IT-MERCK-1001ITA00037

PATIENT
  Age: 76 Year
  Sex: Female

DRUGS (2)
  1. MODURETIC 5-50 [Suspect]
     Indication: HYPERTENSION
     Route: 048
  2. COVERSYL (PERINDOPRIL ARGININE) [Suspect]
     Indication: HYPERTENSION
     Route: 048

REACTIONS (1)
  - RENAL TUBULAR ACIDOSIS [None]
